FAERS Safety Report 19606993 (Version 1)
Quarter: 2021Q3

REPORT INFORMATION
  Report Type: Spontaneous
  Country: TR (occurrence: TR)
  Receive Date: 20210726
  Receipt Date: 20210726
  Transmission Date: 20211014
  Serious: Yes (Other)
  Sender: FDA-Public Use
  Company Number: TR-ORGANON-O2107TUR001527

PATIENT
  Age: 54 Year
  Sex: Female

DRUGS (1)
  1. GONADOTROPIN, CHORIONIC [Suspect]
     Active Substance: CHORIOGONADOTROPIN ALFA
     Indication: WEIGHT DECREASED
     Dosage: 125 INTERNATIONAL UNIT, QD
     Route: 058

REACTIONS (5)
  - Intentional product misuse [Unknown]
  - Breast swelling [Unknown]
  - Postmenopausal haemorrhage [Unknown]
  - Flushing [Unknown]
  - Pulmonary embolism [Recovered/Resolved]
